FAERS Safety Report 25379402 (Version 1)
Quarter: 2025Q2

REPORT INFORMATION
  Report Type: Spontaneous
  Country: CA (occurrence: None)
  Receive Date: 20250529
  Receipt Date: 20250529
  Transmission Date: 20250716
  Serious: Yes (Disabling, Other)
  Sender: FDA-CTU
  Company Number: None

PATIENT
  Age: 39 Year
  Sex: Female
  Weight: 49.5 kg

DRUGS (4)
  1. ESCITALOPRAM [Suspect]
     Active Substance: ESCITALOPRAM OXALATE
     Indication: Anxiety
     Dosage: OTHER QUANTITY : 1 TABLET(S);?FREQUENCY : DAILY;?
  2. ZOLOFT [Suspect]
     Active Substance: SERTRALINE HYDROCHLORIDE
  3. LATUDA [Suspect]
     Active Substance: LURASIDONE HYDROCHLORIDE
  4. REXULTI [Suspect]
     Active Substance: BREXPIPRAZOLE

REACTIONS (35)
  - Intentional product use issue [None]
  - Panic attack [None]
  - Anxiety [None]
  - Personal relationship issue [None]
  - Emotional disorder [None]
  - Withdrawal syndrome [None]
  - Hyperacusis [None]
  - Photophobia [None]
  - Myalgia [None]
  - Restlessness [None]
  - Irritability [None]
  - Insomnia [None]
  - Fatigue [None]
  - Personality disorder [None]
  - Therapy cessation [None]
  - Mania [None]
  - Muscle twitching [None]
  - Syncope [None]
  - Intentional product use issue [None]
  - Impaired work ability [None]
  - Injury [None]
  - Brain fog [None]
  - Cognitive disorder [None]
  - Flat affect [None]
  - Dissociation [None]
  - Depersonalisation/derealisation disorder [None]
  - Fear [None]
  - Palpitations [None]
  - Dyspepsia [None]
  - Nausea [None]
  - Diarrhoea [None]
  - Mental disorder [None]
  - Initial insomnia [None]
  - Impaired quality of life [None]
  - Sympathomimetic effect [None]

NARRATIVE: CASE EVENT DATE: 20240714
